FAERS Safety Report 7978739-0 (Version None)
Quarter: 2011Q4

REPORT INFORMATION
  Report Type: 
  Country: None (occurrence: None)
  Receive Date: 20111207
  Receipt Date: 20111123
  Transmission Date: 20120403
  Serious: Yes (Death, Life-Threatening, Hospitalization)
  Sender: FDA-Public Use
  Company Number: 2008AL005460

PATIENT
  Age: 74 Year
  Sex: Male
  Weight: 91.173 kg

DRUGS (45)
  1. LASIX [Concomitant]
  2. ANTIBIOTICS [Concomitant]
  3. POTASSIUM [Concomitant]
  4. PLAVIX [Concomitant]
  5. TIKOSYN [Concomitant]
  6. WARFARIN SODIUM [Concomitant]
  7. MAGNESIUM [Concomitant]
  8. ALTACE [Concomitant]
  9. ZYRTEC [Concomitant]
  10. ATENOLOL [Concomitant]
  11. CARVEDILOL [Concomitant]
  12. LOVENOX [Concomitant]
  13. CARTIA XT [Concomitant]
  14. COUGH MEDICINE [Concomitant]
  15. TOPROL-XL [Concomitant]
  16. CENTRUM [Concomitant]
  17. NITROGLYCERIN [Concomitant]
  18. PROPOXYPHENE HYDROCHLORIDE [Concomitant]
  19. COREG [Concomitant]
  20. IMDUR [Concomitant]
  21. COZAAR [Concomitant]
  22. DIGOXIN [Suspect]
     Indication: ATRIAL TACHYCARDIA
     Dosage: 0.125 MG;QD;PO
     Route: 048
     Dates: start: 20050324, end: 20070401
  23. CARDIAZEM [Concomitant]
  24. ALLOPURINOL [Concomitant]
  25. ROFECOXIB [Concomitant]
  26. IMDUR [Concomitant]
  27. ZOCOR [Concomitant]
  28. METHYLPREDNISOLONE [Concomitant]
  29. CIPROFLOXACIN [Concomitant]
  30. VIOXX [Concomitant]
  31. IRBESARTAN [Concomitant]
  32. CALCIUM [Concomitant]
  33. COUMADIN [Concomitant]
  34. CALCIUM CARBONATE [Concomitant]
  35. TENORMIN [Concomitant]
  36. SIMVASTATIN [Concomitant]
  37. ASPIRIN [Concomitant]
  38. ZAROXOLYN [Concomitant]
  39. ALLOPURINOL [Concomitant]
  40. TEMAZEPAM [Concomitant]
  41. ALLEGRA [Concomitant]
  42. CLOPIDOGREL [Concomitant]
  43. LISINOPRIL [Concomitant]
  44. METOLAZONE [Concomitant]
  45. MULTIPLE VITAMIN [Concomitant]

REACTIONS (43)
  - UNEVALUABLE EVENT [None]
  - CARDIAC ARREST [None]
  - NECK PAIN [None]
  - VIITH NERVE PARALYSIS [None]
  - EMOTIONAL DISORDER [None]
  - IMPAIRED WORK ABILITY [None]
  - BACK PAIN [None]
  - MUSCLE SPASMS [None]
  - RENAL MASS [None]
  - GENERAL PHYSICAL HEALTH DETERIORATION [None]
  - CONDITION AGGRAVATED [None]
  - ACUTE MYOCARDIAL INFARCTION [None]
  - FOOT FRACTURE [None]
  - MULTIPLE INJURIES [None]
  - ECONOMIC PROBLEM [None]
  - FIBRIN D DIMER INCREASED [None]
  - RENAL FAILURE [None]
  - VASOSPASM [None]
  - VENTRICULAR TACHYCARDIA [None]
  - HYPERTENSION [None]
  - RESPIRATORY DISTRESS [None]
  - PAIN [None]
  - ATRIAL FIBRILLATION [None]
  - ARRHYTHMIA [None]
  - MYOCARDIAL ISCHAEMIA [None]
  - SOCIAL AVOIDANT BEHAVIOUR [None]
  - PULSE ABSENT [None]
  - VASCULAR GRAFT OCCLUSION [None]
  - SLEEP APNOEA SYNDROME [None]
  - ATRIAL FLUTTER [None]
  - TRANSIENT ISCHAEMIC ATTACK [None]
  - RENAL CELL CARCINOMA [None]
  - METABOLIC SYNDROME [None]
  - APHASIA [None]
  - GOUT [None]
  - GILBERT'S SYNDROME [None]
  - DIVERTICULITIS [None]
  - ATRIAL TACHYCARDIA [None]
  - CARDIAC FAILURE CONGESTIVE [None]
  - ARTERIOSCLEROSIS CORONARY ARTERY [None]
  - HYPERLIPIDAEMIA [None]
  - SPLENIC VEIN OCCLUSION [None]
  - HYPOTENSION [None]
